FAERS Safety Report 23505720 (Version 2)
Quarter: 2024Q1

REPORT INFORMATION
  Report Type: Spontaneous
  Country: US (occurrence: US)
  Receive Date: 20240209
  Receipt Date: 20240222
  Transmission Date: 20240410
  Serious: Yes (Hospitalization)
  Sender: FDA-Public Use
  Company Number: US-AMGEN-USASP2024025944

PATIENT
  Age: 54 Year
  Sex: Male

DRUGS (2)
  1. VECTIBIX [Suspect]
     Active Substance: PANITUMUMAB
     Indication: Rectal cancer metastatic
     Dosage: 440 MILLIGRAM
     Route: 042
  2. VECTIBIX [Suspect]
     Active Substance: PANITUMUMAB
     Dosage: 100 MILLIGRAM
     Route: 042
     Dates: end: 20240126

REACTIONS (1)
  - Malaise [Unknown]

NARRATIVE: CASE EVENT DATE: 20240126
